FAERS Safety Report 5859511-4 (Version None)
Quarter: 2008Q3

REPORT INFORMATION
  Report Type: 
  Country: None (occurrence: None)
  Receive Date: 20080827
  Receipt Date: 20080822
  Transmission Date: 20090109
  Serious: Yes (Hospitalization)
  Sender: FDA-Public Use
  Company Number: A0730286A

PATIENT
  Age: 51 Year
  Sex: Male
  Weight: 145.5 kg

DRUGS (3)
  1. AVANDIA [Suspect]
     Dosage: 4MG PER DAY
     Route: 048
     Dates: start: 20060315, end: 20070415
  2. AVANDAMET [Suspect]
     Route: 048
     Dates: start: 20051117, end: 20060120
  3. METFORMIN HCL [Concomitant]
     Dates: start: 20050101

REACTIONS (1)
  - MYOCARDIAL INFARCTION [None]
